FAERS Safety Report 16689157 (Version 1)
Quarter: 2019Q3

REPORT INFORMATION
  Report Type: Spontaneous
  Country: BE (occurrence: BE)
  Receive Date: 20190809
  Receipt Date: 20190809
  Transmission Date: 20191004
  Serious: Yes (Other)
  Sender: FDA-Public Use
  Company Number: BE-ASTRAZENECA-2019SF11431

PATIENT
  Sex: Female

DRUGS (21)
  1. TOCILIZUMAB. [Suspect]
     Active Substance: TOCILIZUMAB
     Indication: POLYCHONDRITIS
     Route: 058
     Dates: start: 20181115
  2. TOCILIZUMAB. [Suspect]
     Active Substance: TOCILIZUMAB
     Indication: OFF LABEL USE
     Route: 058
     Dates: start: 20181115
  3. ARCOXIA [Concomitant]
     Active Substance: ETORICOXIB
     Indication: OFF LABEL USE
     Dosage: 60.0MG UNKNOWN
     Route: 065
  4. OMEPRAZOL [Concomitant]
     Active Substance: OMEPRAZOLE
     Indication: OFF LABEL USE
     Route: 065
  5. TOCILIZUMAB. [Suspect]
     Active Substance: TOCILIZUMAB
     Indication: POLYCHONDRITIS
     Route: 042
     Dates: start: 20171102, end: 20171102
  6. TOCILIZUMAB. [Suspect]
     Active Substance: TOCILIZUMAB
     Indication: POLYCHONDRITIS
     Route: 042
     Dates: start: 20171129, end: 20171129
  7. TOCILIZUMAB. [Suspect]
     Active Substance: TOCILIZUMAB
     Indication: OFF LABEL USE
     Route: 042
     Dates: start: 20171129, end: 20171129
  8. TOCILIZUMAB. [Suspect]
     Active Substance: TOCILIZUMAB
     Indication: POLYCHONDRITIS
     Route: 042
     Dates: start: 20180102, end: 20180102
  9. TOCILIZUMAB. [Suspect]
     Active Substance: TOCILIZUMAB
     Indication: OFF LABEL USE
     Route: 042
     Dates: start: 20171102, end: 20171102
  10. TOCILIZUMAB. [Suspect]
     Active Substance: TOCILIZUMAB
     Indication: OFF LABEL USE
     Route: 058
     Dates: start: 201802
  11. CRESTOR [Suspect]
     Active Substance: ROSUVASTATIN CALCIUM
     Indication: OFF LABEL USE
     Route: 048
  12. TOCILIZUMAB. [Suspect]
     Active Substance: TOCILIZUMAB
     Indication: POLYCHONDRITIS
     Route: 058
     Dates: start: 201802
  13. PROLIA [Concomitant]
     Active Substance: DENOSUMAB
     Indication: OFF LABEL USE
     Dosage: 2 UNIT YEARLY
     Route: 058
  14. FOLIC ACID. [Concomitant]
     Active Substance: FOLIC ACID
     Indication: OFF LABEL USE
     Dosage: 1.0MG UNKNOWN
     Route: 065
  15. LORMETAZEPAM [Concomitant]
     Active Substance: LORMETAZEPAM
     Indication: OFF LABEL USE
     Route: 065
  16. TOCILIZUMAB. [Suspect]
     Active Substance: TOCILIZUMAB
     Indication: POLYCHONDRITIS
     Route: 058
     Dates: start: 201901
  17. TOCILIZUMAB. [Suspect]
     Active Substance: TOCILIZUMAB
     Indication: OFF LABEL USE
     Route: 058
     Dates: start: 201901
  18. TOCILIZUMAB. [Suspect]
     Active Substance: TOCILIZUMAB
     Indication: OFF LABEL USE
     Route: 042
     Dates: start: 20180102, end: 20180102
  19. ARCOXIA [Concomitant]
     Active Substance: ETORICOXIB
     Indication: OFF LABEL USE
     Dosage: 90.0MG UNKNOWN
     Route: 065
  20. CRESTOR [Suspect]
     Active Substance: ROSUVASTATIN CALCIUM
     Indication: HYPERCHOLESTEROLAEMIA
     Route: 048
  21. EUSAPRIM [Concomitant]
     Active Substance: SULFAMETHOXAZOLE\TRIMETHOPRIM
     Indication: OFF LABEL USE
     Dosage: 3 UNIT DAILY
     Route: 065

REACTIONS (11)
  - Respiratory tract infection [Recovered/Resolved]
  - Fatigue [Unknown]
  - Bronchiolitis [Recovered/Resolved]
  - Hypercholesterolaemia [Unknown]
  - Off label use [Unknown]
  - Dysphonia [Unknown]
  - Dyspnoea [Not Recovered/Not Resolved]
  - Oedema peripheral [Not Recovered/Not Resolved]
  - Cough [Not Recovered/Not Resolved]
  - Dysphonia [Not Recovered/Not Resolved]
  - Musculoskeletal pain [Not Recovered/Not Resolved]

NARRATIVE: CASE EVENT DATE: 201801
